FAERS Safety Report 4479419-9 (Version None)
Quarter: 2004Q4

REPORT INFORMATION
  Report Type: 
  Country: None (occurrence: None)
  Receive Date: 20041015
  Receipt Date: 20041006
  Transmission Date: 20050328
  Serious: Yes (Disabling)
  Sender: FDA-Public Use
  Company Number: URSO 2004-021

PATIENT
  Age: 47 Year
  Sex: Female

DRUGS (2)
  1. URSO 250 [Suspect]
     Indication: BILIARY CIRRHOSIS PRIMARY
     Dosage: 1750 MG/DAY; PO
     Route: 048
     Dates: start: 20040401
  2. VITAMIN E [Concomitant]

REACTIONS (1)
  - HYPOACUSIS [None]
